FAERS Safety Report 20893203 (Version 1)
Quarter: 2022Q2

REPORT INFORMATION
  Report Type: Spontaneous
  Country: KR (occurrence: KR)
  Receive Date: 20220531
  Receipt Date: 20220531
  Transmission Date: 20220720
  Serious: Yes (Life-Threatening, Hospitalization, Other)
  Sender: FDA-Public Use
  Company Number: KR-LUPIN PHARMACEUTICALS INC.-2022-07777

PATIENT
  Age: 68 Year
  Sex: Female

DRUGS (1)
  1. AZITHROMYCIN [Suspect]
     Active Substance: AZITHROMYCIN
     Indication: Antibiotic therapy
     Dosage: UNK
     Route: 065

REACTIONS (3)
  - Acute hepatic failure [Recovered/Resolved]
  - Hepatitis [Recovered/Resolved]
  - Somnolence [Recovered/Resolved]
